FAERS Safety Report 6250314-8 (Version None)
Quarter: 2009Q2

REPORT INFORMATION
  Report Type: 
  Country: None (occurrence: None)
  Receive Date: 20090626
  Receipt Date: 20090626
  Transmission Date: 20091009
  Serious: Yes (Life-Threatening, Other)
  Sender: FDA-Public Use
  Company Number: None

PATIENT
  Age: 57 Year
  Sex: Female
  Weight: 85.2762 kg

DRUGS (2)
  1. IC  CITALOPRAM HER 20 MG TORRENT PHARMAC [Suspect]
     Indication: DEPRESSION
     Dosage: 20 MG 1X PER DAY PO
     Route: 048
     Dates: start: 20090210, end: 20090625
  2. IC  CITALOPRAM HER 20 MG TORRENT PHARMAC [Suspect]
     Indication: HOT FLUSH
     Dosage: 20 MG 1X PER DAY PO
     Route: 048
     Dates: start: 20090210, end: 20090625

REACTIONS (2)
  - PALPITATIONS [None]
  - PRODUCT SUBSTITUTION ISSUE [None]
